FAERS Safety Report 21610731 (Version 17)
Quarter: 2025Q1

REPORT INFORMATION
  Report Type: Spontaneous
  Country: US (occurrence: US)
  Receive Date: 20221117
  Receipt Date: 20250326
  Transmission Date: 20250409
  Serious: Yes (Hospitalization, Other)
  Sender: ROCHE
  Company Number: US-ROCHE-3217821

PATIENT
  Age: 63 Year
  Sex: Male
  Weight: 60.4 kg

DRUGS (15)
  1. HEMLIBRA [Suspect]
     Active Substance: EMICIZUMAB-KXWH
     Indication: Factor VIII deficiency
     Dosage: FORM STRENGTH : 60MG/0.4ML, 105MG/0.7ML
     Route: 058
     Dates: start: 20190425
  2. HEMLIBRA [Suspect]
     Active Substance: EMICIZUMAB-KXWH
     Indication: Haemophilia A without inhibitors
     Route: 058
  3. HEMLIBRA [Suspect]
     Active Substance: EMICIZUMAB-KXWH
     Dosage: FORM STRENGTH : 60MG/0.4ML
     Route: 058
     Dates: start: 20190319
  4. HEMLIBRA [Suspect]
     Active Substance: EMICIZUMAB-KXWH
     Dosage: FORM STRENGTH : 105MG/0.7ML
     Route: 058
     Dates: start: 20210526
  5. HEMLIBRA [Suspect]
     Active Substance: EMICIZUMAB-KXWH
     Dosage: FORM STRENGTH : 105MG/0.7ML
     Route: 058
     Dates: start: 20220319
  6. HEMLIBRA [Suspect]
     Active Substance: EMICIZUMAB-KXWH
     Route: 058
     Dates: start: 202302
  7. HEMLIBRA [Suspect]
     Active Substance: EMICIZUMAB-KXWH
     Route: 058
     Dates: start: 201904
  8. METFORMIN [Concomitant]
     Active Substance: METFORMIN HYDROCHLORIDE
  9. LIPITOR [Concomitant]
     Active Substance: ATORVASTATIN CALCIUM
  10. LISINOPRIL [Concomitant]
     Active Substance: LISINOPRIL
  11. AMLODIPINE [Concomitant]
     Active Substance: AMLODIPINE BESYLATE
  12. FOLIC ACID [Concomitant]
     Active Substance: FOLIC ACID
  13. MYFORTIC [Concomitant]
     Active Substance: MYCOPHENOLATE SODIUM
  14. ENTECAVIR [Concomitant]
     Active Substance: ENTECAVIR
  15. TACROLIMUS (BIOCON) [Concomitant]

REACTIONS (4)
  - Haemorrhage [Unknown]
  - Cerebrovascular accident [Recovering/Resolving]
  - Peroneal nerve palsy [Not Recovered/Not Resolved]
  - Blindness unilateral [Unknown]

NARRATIVE: CASE EVENT DATE: 20200101
